FAERS Safety Report 22352327 (Version 1)
Quarter: 2023Q2

REPORT INFORMATION
  Report Type: Other
  Country: CN (occurrence: CN)
  Receive Date: 20230522
  Receipt Date: 20230522
  Transmission Date: 20230721
  Serious: Yes (Disabling)
  Sender: FDA-Public Use
  Company Number: CN-PARATEK PHARMACEUTICALS, INC.-2023PTK00217

PATIENT
  Age: 74 Year
  Sex: Male
  Weight: 58 kg

DRUGS (6)
  1. NUZYRA [Suspect]
     Active Substance: OMADACYCLINE
     Indication: Pneumonia
     Dosage: 0.1 G, 1X/DAY
     Route: 041
     Dates: start: 20230407, end: 20230411
  2. ETIMICIN SULFATE [Suspect]
     Active Substance: ETIMICIN SULFATE
     Indication: Pneumonia
     Dosage: 0.3 G, 1X/DAY
     Route: 041
     Dates: start: 20230407, end: 20230411
  3. HERBALS [Suspect]
     Active Substance: HERBALS
     Indication: Pneumonia
     Dosage: 50 ML, 1X/DAY
     Route: 041
     Dates: start: 20230407, end: 20230411
  4. AMIKACIN SULFATE [Concomitant]
     Active Substance: AMIKACIN SULFATE
     Indication: Urinary tract infection
     Dosage: 0.2 G, 2X/DAY
     Route: 041
     Dates: start: 20230330, end: 20230405
  5. AMIKACIN SULFATE [Concomitant]
     Active Substance: AMIKACIN SULFATE
     Dosage: 0.2 G, 1X/DAY
     Route: 041
     Dates: start: 20230406, end: 20230407
  6. CEFOPERAZONE SODIUM\SULBACTAM SODIUM [Concomitant]
     Active Substance: CEFOPERAZONE SODIUM\SULBACTAM SODIUM
     Indication: Urinary tract infection
     Dosage: 2 G, EVERY 12 HOURS
     Route: 041
     Dates: start: 20230406, end: 20230407

REACTIONS (2)
  - Hepatic function abnormal [Recovered/Resolved]
  - Condition aggravated [Recovered/Resolved]
